FAERS Safety Report 6579082-7 (Version None)
Quarter: 2010Q1

REPORT INFORMATION
  Report Type: 
  Country: None (occurrence: None)
  Receive Date: 20100212
  Receipt Date: 20100201
  Transmission Date: 20100710
  Serious: Yes (Hospitalization)
  Sender: FDA-Public Use
  Company Number: GB-JNJFOC-20100201703

PATIENT
  Sex: Female

DRUGS (3)
  1. REMICADE [Suspect]
     Indication: CROHN'S DISEASE
     Route: 042
     Dates: start: 20071101, end: 20091217
  2. REMICADE [Suspect]
     Route: 042
     Dates: start: 20071101, end: 20091217
  3. ACYCLOVIR [Suspect]
     Indication: HERPES ZOSTER

REACTIONS (3)
  - BLOOD ALBUMIN DECREASED [None]
  - HEPATIC ENZYME INCREASED [None]
  - HERPES ZOSTER [None]
